FAERS Safety Report 15322517 (Version 1)
Quarter: 2018Q3

REPORT INFORMATION
  Report Type: Spontaneous
  Country: ES (occurrence: ES)
  Receive Date: 20180827
  Receipt Date: 20180827
  Transmission Date: 20181010
  Serious: Yes (Death)
  Sender: FDA-Public Use
  Company Number: PHHY2018ES081534

PATIENT
  Age: 65 Year
  Sex: Male

DRUGS (2)
  1. VORICONAZOLE. [Suspect]
     Active Substance: VORICONAZOLE
     Indication: BLASTOMYCOSIS
     Dosage: 840 MG, UNK
     Route: 065
  2. TERBINAFINE SANDOZ [Suspect]
     Active Substance: TERBINAFINE
     Indication: BLASTOMYCOSIS
     Dosage: 250 MG, UNK
     Route: 065

REACTIONS (1)
  - Drug ineffective [Fatal]
